FAERS Safety Report 5011638-5 (Version None)
Quarter: 2006Q2

REPORT INFORMATION
  Report Type: 
  Country: None (occurrence: None)
  Receive Date: 20060526
  Receipt Date: 20060518
  Transmission Date: 20061013
  Serious: Yes (Hospitalization)
  Sender: FDA-Public Use
  Company Number: US-JNJFOC-20060504188

PATIENT
  Sex: Male
  Weight: 78.93 kg

DRUGS (15)
  1. REMICADE [Suspect]
     Indication: RHEUMATOID ARTHRITIS
     Route: 042
  2. ADVAIR DISKUS 100/50 [Concomitant]
  3. ADVAIR DISKUS 100/50 [Concomitant]
  4. METHOTREXATE [Concomitant]
  5. HYDROCHLOROQUINE [Concomitant]
  6. DICLOFENAC POTASSIUM [Concomitant]
  7. FOLIC ACID [Concomitant]
  8. PREDNISONE TAB [Concomitant]
  9. PROPOXY/APAP [Concomitant]
  10. PROPOXY/APAP [Concomitant]
  11. NORVASC [Concomitant]
  12. ZETIA [Concomitant]
  13. PRAVACHOL [Concomitant]
  14. COMBIVENT [Concomitant]
  15. COMBIVENT [Concomitant]

REACTIONS (2)
  - NEPHROLITHIASIS [None]
  - RETROPERITONEAL EFFUSION [None]
